FAERS Safety Report 8549543-X (Version None)
Quarter: 2012Q3

REPORT INFORMATION
  Report Type: 
  Country: None (occurrence: None)
  Receive Date: 20120730
  Receipt Date: 20120724
  Transmission Date: 20120928
  Serious: Yes (Hospitalization)
  Sender: FDA-Public Use
  Company Number: JP-PFIZER INC-2012161567

PATIENT
  Age: 57 Year
  Sex: Male

DRUGS (2)
  1. SUTENT [Suspect]
     Indication: RENAL CELL CARCINOMA
     Dosage: 50 MG, 1X/DAY
     Route: 048
     Dates: start: 20120119
  2. SUTENT [Suspect]
     Dosage: 25 MG, 1X/DAY
     Route: 048

REACTIONS (2)
  - PNEUMONIA [None]
  - INTERSTITIAL LUNG DISEASE [None]
